FAERS Safety Report 10483881 (Version 1)
Quarter: 2014Q3

REPORT INFORMATION
  Report Type: Spontaneous
  Country: CH (occurrence: CH)
  Receive Date: 20140930
  Receipt Date: 20140930
  Transmission Date: 20150326
  Serious: Yes (Hospitalization)
  Sender: FDA-Public Use
  Company Number: CH-ELI_LILLY_AND_COMPANY-CH201409006525

PATIENT
  Age: 54 Year
  Sex: Female

DRUGS (12)
  1. ZYPREXA [Interacting]
     Active Substance: OLANZAPINE
     Dosage: 15 MG, QD
     Route: 048
     Dates: start: 20140131, end: 20140204
  2. ZYPREXA [Interacting]
     Active Substance: OLANZAPINE
     Dosage: 5 MG, QD
     Route: 048
     Dates: start: 20140207, end: 20140211
  3. LEPONEX [Interacting]
     Active Substance: CLOZAPINE
     Dosage: 175-200MG, DAILY
     Route: 048
     Dates: start: 20140203, end: 20140204
  4. LEPONEX [Interacting]
     Active Substance: CLOZAPINE
     Dosage: 50-75MG, DAILY
     Route: 048
     Dates: start: 20140129, end: 20140130
  5. LEPONEX [Interacting]
     Active Substance: CLOZAPINE
     Dosage: 275 MG, QD
     Route: 048
     Dates: start: 20140207, end: 20140207
  6. LYRICA [Interacting]
     Active Substance: PREGABALIN
     Indication: PRODUCT USED FOR UNKNOWN INDICATION
     Dosage: 200 MG, UNKNOWN
     Route: 048
     Dates: end: 20140212
  7. ZYPREXA [Suspect]
     Active Substance: OLANZAPINE
     Indication: SCHIZOPHRENIA, PARANOID TYPE
     Dosage: 20 MG, QD
     Route: 048
     Dates: end: 20140130
  8. LEPONEX [Interacting]
     Active Substance: CLOZAPINE
     Dosage: 225-250MG, DAILY
     Route: 048
     Dates: start: 20140205, end: 20140206
  9. LEPONEX [Interacting]
     Active Substance: CLOZAPINE
     Dosage: 300 MG, QD
     Route: 048
     Dates: start: 20140208, end: 20140208
  10. LEPONEX [Interacting]
     Active Substance: CLOZAPINE
     Dosage: 100-150MG, DAILY
     Route: 048
     Dates: start: 20140131, end: 20140202
  11. ZYPREXA [Interacting]
     Active Substance: OLANZAPINE
     Dosage: 10 MG, QD
     Route: 048
     Dates: start: 20140205, end: 20140206
  12. LEPONEX [Interacting]
     Active Substance: CLOZAPINE
     Indication: SCHIZOPHRENIA, PARANOID TYPE
     Dosage: 12.5-25MG, DAILY
     Route: 048
     Dates: start: 20140127, end: 20140128

REACTIONS (2)
  - Toxicity to various agents [Recovered/Resolved]
  - Drug interaction [Recovered/Resolved]

NARRATIVE: CASE EVENT DATE: 20140208
